FAERS Safety Report 15904327 (Version 1)
Quarter: 2019Q1

REPORT INFORMATION
  Report Type: Report from Study
  Country: DE (occurrence: DE)
  Receive Date: 20190204
  Receipt Date: 20190204
  Transmission Date: 20190417
  Serious: Yes (Other)
  Sender: FDA-Public Use
  Company Number: DE-ROCHE-2255094

PATIENT
  Age: 60 Year
  Sex: Male
  Weight: 86 kg

DRUGS (34)
  1. PREDNISOLON [Concomitant]
     Active Substance: PREDNISOLONE
     Route: 048
     Dates: start: 20180108, end: 20180112
  2. PREDNISOLON [Concomitant]
     Active Substance: PREDNISOLONE
     Route: 048
     Dates: start: 20180115, end: 20180116
  3. SOLARAZE [Concomitant]
     Active Substance: DICLOFENAC SODIUM
     Indication: ACTINIC KERATOSIS
     Route: 065
     Dates: start: 20181123
  4. ARCOXIA [Concomitant]
     Active Substance: ETORICOXIB
     Indication: ARTHRALGIA
     Route: 048
     Dates: start: 20170630
  5. PREDNISOLON [Concomitant]
     Active Substance: PREDNISOLONE
     Indication: COUGH
     Route: 048
     Dates: start: 20171116, end: 20171118
  6. PREDNISOLON [Concomitant]
     Active Substance: PREDNISOLONE
     Route: 048
     Dates: start: 20171230, end: 20180107
  7. PANTOPRAZOL [Concomitant]
     Active Substance: PANTOPRAZOLE SODIUM
     Route: 048
     Dates: start: 20171110
  8. AMOXICILLIN/CLAVULANIC ACID [Concomitant]
     Active Substance: AMOXICILLIN\CLAVULANIC ACID
     Indication: COUGH
     Route: 065
     Dates: start: 20180105, end: 20180112
  9. PREDNISOLON [Concomitant]
     Active Substance: PREDNISOLONE
     Route: 048
     Dates: start: 20171119, end: 20171122
  10. PREDNISOLON [Concomitant]
     Active Substance: PREDNISOLONE
     Route: 048
     Dates: start: 20171128, end: 20171208
  11. MUCOSOLVAN [Concomitant]
     Active Substance: AMBROXOL HYDROCHLORIDE
     Indication: VIRAL INFECTION
     Route: 065
     Dates: start: 20180130
  12. IBUPROFEN. [Concomitant]
     Active Substance: IBUPROFEN
     Indication: HEADACHE
     Route: 065
     Dates: start: 20180717
  13. IBUPROFEN. [Concomitant]
     Active Substance: IBUPROFEN
     Indication: ARTHRALGIA
     Route: 065
     Dates: start: 20171103
  14. CHLORHEXIL [Concomitant]
     Indication: VIRAL INFECTION
     Route: 065
     Dates: start: 20180130
  15. BETAGALEN [Concomitant]
     Indication: SARCOIDOSIS
     Route: 065
     Dates: start: 20180509
  16. IBUPROFEN. [Concomitant]
     Active Substance: IBUPROFEN
     Indication: VIRAL INFECTION
     Route: 065
     Dates: start: 20180130, end: 20180201
  17. ATEZOLIZUMAB. [Suspect]
     Active Substance: ATEZOLIZUMAB
     Indication: METASTATIC MALIGNANT MELANOMA
     Dosage: ON 27/OCT/2017, HE RECEIVED THE MOST RECENT DOSE OF BLINDED ATEZOLIZUMAB PRIOR TO EVENT ONSET.?DOSE:
     Route: 042
     Dates: start: 20170526
  18. PREDNISOLON [Concomitant]
     Active Substance: PREDNISOLONE
     Route: 048
     Dates: start: 20180113, end: 20180114
  19. PREDNISOLON [Concomitant]
     Active Substance: PREDNISOLONE
     Route: 048
     Dates: start: 20180117, end: 20180118
  20. PREDNISOLON [Concomitant]
     Active Substance: PREDNISOLONE
     Route: 048
     Dates: start: 20180119
  21. IDEOS [Concomitant]
     Active Substance: CALCIUM CARBONATE\CHOLECALCIFEROL
     Route: 048
     Dates: start: 20171110
  22. AMPHO MORONAL [Concomitant]
     Active Substance: AMPHOTERICIN B
     Route: 065
     Dates: start: 20181109
  23. CANDESARTAN. [Concomitant]
     Active Substance: CANDESARTAN
     Indication: HYPERTENSION
     Route: 048
     Dates: start: 20150801
  24. OMEPRAZOL [Concomitant]
     Active Substance: OMEPRAZOLE
     Route: 048
     Dates: start: 20170616
  25. PREDNISOLON [Concomitant]
     Active Substance: PREDNISOLONE
     Indication: SARCOIDOSIS
     Route: 048
     Dates: start: 20171110, end: 20171115
  26. PREDNISOLON [Concomitant]
     Active Substance: PREDNISOLONE
     Route: 048
     Dates: start: 20171123, end: 20171127
  27. PREDNISOLON [Concomitant]
     Active Substance: PREDNISOLONE
     Route: 048
     Dates: start: 20171209, end: 20171229
  28. PREDNISOLON [Concomitant]
     Active Substance: PREDNISOLONE
     Route: 048
     Dates: start: 20180119
  29. COBIMETINIB. [Suspect]
     Active Substance: COBIMETINIB
     Indication: METASTATIC MALIGNANT MELANOMA
     Dosage: ON 10/NOV/2017, HE RECEIVED THE MOST RECENT DOSE OF COBIMETINIB PRIOR TO EVENT ONSET.
     Route: 048
     Dates: start: 20170428
  30. VEMURAFENIB. [Suspect]
     Active Substance: VEMURAFENIB
     Indication: METASTATIC MALIGNANT MELANOMA
     Dosage: ON 10/NOV/2017, HE RECEIVED THE MOST RECENT DOSE OF VEMURAFENIB (4 TABLETS) PRIOR TO EVENT ONSET.
     Route: 048
     Dates: start: 20170428
  31. ATOSIL [Concomitant]
     Active Substance: PROMETHAZINE HYDROCHLORIDE
     Dosage: 5 OTHER
     Route: 048
     Dates: start: 20180509
  32. ELIDEL [Concomitant]
     Active Substance: PIMECROLIMUS
     Indication: ANGULAR CHEILITIS
     Route: 065
     Dates: start: 20181001
  33. GENTAMYCIN [Concomitant]
     Active Substance: GENTAMICIN
     Indication: HORDEOLUM
     Route: 065
     Dates: start: 20170801
  34. OTRIVEN SINUSPRAY [Concomitant]
     Active Substance: XYLOMETAZOLINE HYDROCHLORIDE
     Indication: VIRAL INFECTION
     Route: 065
     Dates: start: 20180130

REACTIONS (1)
  - Serous retinal detachment [Not Recovered/Not Resolved]

NARRATIVE: CASE EVENT DATE: 20171110
